FAERS Safety Report 9585194 (Version 1)
Quarter: 2013Q4

REPORT INFORMATION
  Report Type: Spontaneous
  Country: US (occurrence: US)
  Receive Date: 20131002
  Receipt Date: 20131002
  Transmission Date: 20140711
  Serious: No
  Sender: FDA-Public Use
  Company Number: US-AMGEN-USASP2013062552

PATIENT
  Age: 58 Year
  Sex: Female
  Weight: 90.7 kg

DRUGS (11)
  1. ENBREL [Suspect]
     Indication: PRODUCT USED FOR UNKNOWN INDICATION
     Dosage: 50 MG, QWK
     Route: 058
     Dates: start: 201306
  2. CRESTOR [Concomitant]
     Dosage: 20 MG, UNK
  3. GLUMETZA [Concomitant]
     Dosage: 1000 MG, UNK
  4. VICTOZA [Concomitant]
     Dosage: 18 MG/3ML
  5. HUMALOG [Concomitant]
     Dosage: 75/25, UNK
  6. VITAMIN D3 [Concomitant]
     Dosage: 10000 UNIT, UNK
  7. ACID REDUCER                       /00397401/ [Concomitant]
     Dosage: 10 MG, UNK
  8. MAGNESIUM [Concomitant]
     Dosage: 400 MG, UNK
  9. OMEGA 3                            /01334101/ [Concomitant]
     Dosage: 340 MG, UNK
  10. PROBIOTIC                          /06395501/ [Concomitant]
     Dosage: UNK
  11. PREDNISONE [Concomitant]
     Dosage: UNK

REACTIONS (2)
  - Myalgia [Unknown]
  - Hyperhidrosis [Unknown]
